FAERS Safety Report 8084073-3 (Version None)
Quarter: 2012Q1

REPORT INFORMATION
  Report Type: 
  Country: None (occurrence: None)
  Receive Date: 20120128
  Receipt Date: 20110129
  Transmission Date: 20120608
  Serious: No
  Sender: FDA-Public Use
  Company Number: US-ABBOTT-11P-163-0701545-00

PATIENT
  Age: 60 Year
  Sex: Female

DRUGS (6)
  1. HUMIRA [Suspect]
     Indication: CROHN'S DISEASE
     Dates: start: 20101210
  2. WELLBUTRIN [Concomitant]
     Indication: EX-TOBACCO USER
  3. VICODIN [Concomitant]
     Indication: BONE PAIN
     Dosage: 5/500 2-6 TABS DAILY
  4. IMODIUM [Concomitant]
     Indication: DIARRHOEA
     Dosage: 2 MG 2-4 TABS DAILY
  5. NICOTINE [Concomitant]
     Indication: PRODUCT USED FOR UNKNOWN INDICATION
     Dosage: PATCH DAILY
  6. XANAX [Concomitant]
     Indication: NERVOUSNESS
     Dosage: AS NEEDED

REACTIONS (4)
  - DRUG DOSE OMISSION [None]
  - INJECTION SITE HAEMATOMA [None]
  - INJECTION SITE PAIN [None]
  - WRONG TECHNIQUE IN DRUG USAGE PROCESS [None]
